FAERS Safety Report 23980545 (Version 1)
Quarter: 2024Q2

REPORT INFORMATION
  Report Type: Spontaneous
  Country: DE (occurrence: DE)
  Receive Date: 20240617
  Receipt Date: 20240617
  Transmission Date: 20240715
  Serious: No
  Sender: FDA-Public Use
  Company Number: DE-ALKEM LABORATORIES LIMITED-DE-ALKEM-2024-06730

PATIENT
  Age: 34 Year
  Sex: Female

DRUGS (13)
  1. GABAPENTIN [Suspect]
     Active Substance: GABAPENTIN
     Indication: Occipital lobe epilepsy
     Dosage: UNK
     Route: 065
  2. LAMOTRIGINE [Suspect]
     Active Substance: LAMOTRIGINE
     Indication: Seizure
     Dosage: UNK
     Route: 065
  3. LEVETIRACETAM [Suspect]
     Active Substance: LEVETIRACETAM
     Indication: Seizure
     Dosage: UNK
     Route: 065
  4. OXCARBAZEPINE [Suspect]
     Active Substance: OXCARBAZEPINE
     Indication: Occipital lobe epilepsy
     Dosage: UNK
     Route: 065
  5. TOPIRAMATE [Interacting]
     Active Substance: TOPIRAMATE
     Indication: Occipital lobe epilepsy
     Dosage: 200 MILLIGRAM
     Route: 065
  6. BRIVARACETAM [Interacting]
     Active Substance: BRIVARACETAM
     Indication: Off label use
     Dosage: 200 MILLIGRAM
     Route: 065
  7. BRIVARACETAM [Interacting]
     Active Substance: BRIVARACETAM
     Indication: Occipital lobe epilepsy
  8. PERAMPANEL [Suspect]
     Active Substance: PERAMPANEL
     Indication: Occipital lobe epilepsy
     Dosage: UNK
     Route: 065
  9. CARBAMAZEPINE [Suspect]
     Active Substance: CARBAMAZEPINE
     Indication: Occipital lobe epilepsy
     Dosage: UNK
     Route: 065
  10. VALPROATE [Suspect]
     Active Substance: VALPROIC ACID
     Indication: Occipital lobe epilepsy
     Dosage: UNK
     Route: 065
  11. ZONISAMIDE [Suspect]
     Active Substance: ZONISAMIDE
     Indication: Occipital lobe epilepsy
     Dosage: UNK
     Route: 065
  12. FOLIC ACID [Concomitant]
     Active Substance: FOLIC ACID
     Indication: Supplementation therapy
     Dosage: 5 MILLIGRAM, QD (DOSE REDUCED)
     Route: 065
  13. FOLIC ACID [Concomitant]
     Active Substance: FOLIC ACID
     Dosage: 0.8 MILLIGRAM, QD
     Route: 065

REACTIONS (10)
  - Adverse drug reaction [Unknown]
  - Drug level increased [Unknown]
  - Drug intolerance [Unknown]
  - Multiple-drug resistance [Unknown]
  - Drug interaction [Unknown]
  - Maternal exposure during pregnancy [Unknown]
  - Maternal exposure during breast feeding [Unknown]
  - Maternal exposure before pregnancy [Unknown]
  - Off label use [Unknown]
  - Drug ineffective [Unknown]

NARRATIVE: CASE EVENT DATE: 20210101
